FAERS Safety Report 19306494 (Version 1)
Quarter: 2021Q2

REPORT INFORMATION
  Report Type: Spontaneous
  Country: US (occurrence: US)
  Receive Date: 20210525
  Receipt Date: 20210525
  Transmission Date: 20210717
  Serious: Yes (Other)
  Sender: FDA-Public Use
  Company Number: None

PATIENT
  Age: 52 Year
  Sex: Female
  Weight: 103.5 kg

DRUGS (18)
  1. DULOXETINE. [Concomitant]
     Active Substance: DULOXETINE
  2. PIAGLITAZONE [Concomitant]
  3. LEVOTHYROXINE. [Concomitant]
     Active Substance: LEVOTHYROXINE
  4. ZONISAMIDE. [Concomitant]
     Active Substance: ZONISAMIDE
  5. B12 SHOTS [Suspect]
     Active Substance: CYANOCOBALAMIN
  6. METHOCARBAMOL 750 MG TABLETS SOLC [Suspect]
     Active Substance: METHOCARBAMOL
     Indication: SPINAL PAIN
     Dosage: ?          QUANTITY:60 TABLET(S);?
     Route: 048
     Dates: start: 20210521, end: 20210524
  7. BUPROPRION [Concomitant]
     Active Substance: BUPROPION
  8. VENTAFAXINE [Concomitant]
  9. IRON [Concomitant]
     Active Substance: IRON
  10. BIOTIN [Concomitant]
     Active Substance: BIOTIN
  11. VITAMIN D2 [Concomitant]
     Active Substance: ERGOCALCIFEROL
  12. ABILIFY [Concomitant]
     Active Substance: ARIPIPRAZOLE
  13. MULTIVITAMIN [Concomitant]
     Active Substance: VITAMINS
  14. CALCIUM + D [Concomitant]
     Active Substance: CALCIUM\VITAMIN D
  15. CGM [Concomitant]
  16. METOPROLOL. [Concomitant]
     Active Substance: METOPROLOL
  17. ADDERALL [Concomitant]
     Active Substance: AMPHETAMINE ASPARTATE\AMPHETAMINE SULFATE\DEXTROAMPHETAMINE SACCHARATE\DEXTROAMPHETAMINE SULFATE
  18. BIRTH CONTROL PILLS [Concomitant]
     Active Substance: UNSPECIFIED INGREDIENT

REACTIONS (2)
  - Headache [None]
  - Blood glucose decreased [None]

NARRATIVE: CASE EVENT DATE: 20210524
